FAERS Safety Report 6958497-9 (Version None)
Quarter: 2010Q3

REPORT INFORMATION
  Report Type: 
  Country: None (occurrence: None)
  Receive Date: 20100831
  Receipt Date: 20100827
  Transmission Date: 20110219
  Serious: Yes (Other)
  Sender: FDA-Public Use
  Company Number: FR-JNJFOC-20100510120

PATIENT
  Age: 37 Year
  Sex: Female

DRUGS (4)
  1. REMICADE [Suspect]
     Indication: ENTEROCOLITIS HAEMORRHAGIC
     Dosage: 7TH INFUSION
     Route: 042
  2. REMICADE [Suspect]
     Dosage: 8TH INFUSION
     Route: 042
  3. REMICADE [Suspect]
     Dosage: 9TH INFUSION
     Route: 042
  4. REMICADE [Suspect]
     Route: 042

REACTIONS (2)
  - CRYOGLOBULINAEMIA [None]
  - POLYMYOSITIS [None]
